FAERS Safety Report 13590900 (Version 3)
Quarter: 2017Q4

REPORT INFORMATION
  Report Type: Spontaneous
  Country: IT (occurrence: IT)
  Receive Date: 20170529
  Receipt Date: 20171219
  Transmission Date: 20180320
  Serious: Yes (Life-Threatening, Hospitalization, Other)
  Sender: FDA-Public Use
  Company Number: IT-AMGEN-ITASP2017051921

PATIENT
  Age: 78 Year
  Sex: Male

DRUGS (4)
  1. ZANTIPRES [Concomitant]
     Active Substance: ZOFENOPRIL
     Dosage: UNK
  2. CRESTOR [Concomitant]
     Active Substance: ROSUVASTATIN CALCIUM
     Dosage: 10 MG, UNK
  3. MEDROL [Concomitant]
     Active Substance: METHYLPREDNISOLONE
     Dosage: 16 MG, UNK
     Route: 048
  4. PROLIA [Suspect]
     Active Substance: DENOSUMAB
     Indication: OSTEOPOROSIS
     Dosage: 60 MG/ML, CYCLICAL
     Route: 058
     Dates: start: 201412, end: 20160930

REACTIONS (8)
  - Pneumoperitoneum [Unknown]
  - Organising pneumonia [Unknown]
  - Subcutaneous emphysema [Unknown]
  - Respiratory distress [Not Recovered/Not Resolved]
  - Influenza [Unknown]
  - Interstitial lung disease [Unknown]
  - Pneumomediastinum [Unknown]
  - Hypokinesia [Unknown]

NARRATIVE: CASE EVENT DATE: 20161207
